FAERS Safety Report 24125073 (Version 2)
Quarter: 2024Q4

REPORT INFORMATION
  Report Type: Spontaneous
  Country: DE (occurrence: DE)
  Receive Date: 20240723
  Receipt Date: 20241220
  Transmission Date: 20250115
  Serious: Yes (Death, Life-Threatening, Other)
  Sender: AMGEN
  Company Number: DE-AMGEN-DEUSP2024141810

PATIENT

DRUGS (5)
  1. PEGFILGRASTIM [Suspect]
     Active Substance: PEGFILGRASTIM
     Indication: Prophylaxis
     Dosage: 6 MILLIGRAM, ON DAYS 1 AND 15
     Route: 065
  2. RITUXIMAB [Concomitant]
     Active Substance: RITUXIMAB
     Indication: Product used for unknown indication
     Dosage: UNK
     Route: 065
  3. FLUDARABINE [Suspect]
     Active Substance: FLUDARABINE PHOSPHATE
     Indication: Chronic lymphocytic leukaemia
     Dosage: UNK
     Route: 065
  4. ALEMTUZUMAB [Concomitant]
     Active Substance: ALEMTUZUMAB
     Indication: Chronic lymphocytic leukaemia
     Dosage: 30 MILLIGRAM, QWK (3 FOR 28 DAYS)
     Route: 058
  5. DEXAMETHASONE [Concomitant]
     Active Substance: DEXAMETHASONE
     Indication: Chronic lymphocytic leukaemia
     Dosage: 40 MILLIGRAM, ON DAYS 1-4 AND 15-18
     Route: 048

REACTIONS (17)
  - Death [Fatal]
  - Chronic lymphocytic leukaemia [Fatal]
  - Toxicity to various agents [Fatal]
  - Neutropenia [Unknown]
  - Thrombocytopenia [Unknown]
  - Anaemia [Unknown]
  - Infection [Unknown]
  - Immune thrombocytopenia [Unknown]
  - Diarrhoea [Unknown]
  - Septic shock [Unknown]
  - Tachycardia [Unknown]
  - Cardiac failure [Unknown]
  - Syncope [Unknown]
  - Pulmonary embolism [Unknown]
  - Thrombosis [Unknown]
  - Cytomegalovirus infection reactivation [Not Recovered/Not Resolved]
  - Erythema [Unknown]
